FAERS Safety Report 23594992 (Version 1)
Quarter: 2024Q1

REPORT INFORMATION
  Report Type: Spontaneous
  Country: US (occurrence: US)
  Receive Date: 20240305
  Receipt Date: 20240305
  Transmission Date: 20240410
  Serious: Yes (Hospitalization, Other)
  Sender: FDA-Public Use
  Company Number: US-ASTELLAS-2024EU001878

PATIENT
  Age: 65 Year
  Sex: Male

DRUGS (6)
  1. TACROLIMUS [Interacting]
     Active Substance: TACROLIMUS
     Indication: Lung transplant
     Dosage: UNK UNK, UNKNOWN FREQ.
     Route: 065
  2. POSACONAZOLE [Interacting]
     Active Substance: POSACONAZOLE
     Indication: Systemic mycosis
     Route: 065
  3. POSACONAZOLE [Interacting]
     Active Substance: POSACONAZOLE
     Dosage: UNK UNK, TWICE DAILY (ERRONEOUSLY TAKING POSACONAZOLE TWICE DAILY INSTEAD OF DAILY)
     Route: 065
  4. PREDNISONE [Concomitant]
     Active Substance: PREDNISONE
     Indication: Lung transplant
     Dosage: UNK UNK, UNKNOWN FREQ.
     Route: 065
  5. MYCOPHENOLATE MOFETIL [Concomitant]
     Active Substance: MYCOPHENOLATE MOFETIL
     Indication: Lung transplant
     Dosage: UNK UNK, UNKNOWN FREQ.
     Route: 065
  6. SULFAMETHOXAZOLE\TRIMETHOPRIM [Concomitant]
     Active Substance: SULFAMETHOXAZOLE\TRIMETHOPRIM
     Indication: Prophylaxis
     Dosage: UNK UNK, UNKNOWN FREQ.
     Route: 065

REACTIONS (7)
  - Toxicity to various agents [Unknown]
  - Systemic mycosis [Recovering/Resolving]
  - Abscess neck [Recovering/Resolving]
  - Acute kidney injury [Unknown]
  - Staphylococcal infection [Recovering/Resolving]
  - Escherichia infection [Recovering/Resolving]
  - Drug interaction [Unknown]
